FAERS Safety Report 18105585 (Version 1)
Quarter: 2020Q3

REPORT INFORMATION
  Report Type: Spontaneous
  Country: HR (occurrence: HR)
  Receive Date: 20200803
  Receipt Date: 20200803
  Transmission Date: 20201103
  Serious: Yes (Other)
  Sender: FDA-Public Use
  Company Number: HR-MYLANLABS-2020M1068343

PATIENT
  Sex: Male

DRUGS (4)
  1. NORMABEL [Suspect]
     Active Substance: DIAZEPAM
     Indication: PRODUCT USED FOR UNKNOWN INDICATION
     Dosage: 100 MILLIGRAM, QD
     Route: 048
     Dates: start: 20200517, end: 20200517
  2. PRAZINE (PROMAZINE HYDROCHLORIDE) [Suspect]
     Active Substance: PROMAZINE HYDROCHLORIDE
     Indication: PRODUCT USED FOR UNKNOWN INDICATION
     Dosage: 475 MILLIGRAM, QD
     Route: 048
     Dates: start: 20200517, end: 20200517
  3. IBUPROFEN. [Suspect]
     Active Substance: IBUPROFEN
     Indication: PRODUCT USED FOR UNKNOWN INDICATION
     Dosage: 6000 MILLIGRAM, QD
     Route: 048
     Dates: start: 20200517, end: 20200517
  4. LORISTA H [Suspect]
     Active Substance: HYDROCHLOROTHIAZIDE\LOSARTAN POTASSIUM
     Indication: PRODUCT USED FOR UNKNOWN INDICATION
     Dosage: 27 DOSAGE FORM, QD, DF= 20 MG LOSARTANA I 12,50 MG HIDROKLOROTIAZIDA
     Route: 048
     Dates: start: 20200517, end: 20200517

REACTIONS (6)
  - Somnolence [Unknown]
  - Intentional overdose [Unknown]
  - Gait disturbance [Unknown]
  - Suicide attempt [Unknown]
  - Asthenia [Unknown]
  - Ataxia [Unknown]

NARRATIVE: CASE EVENT DATE: 20200517
